FAERS Safety Report 5938695-3 (Version None)
Quarter: 2008Q4

REPORT INFORMATION
  Report Type: 
  Country: None (occurrence: None)
  Receive Date: 20081103
  Receipt Date: 20081023
  Transmission Date: 20090506
  Serious: Yes (Other)
  Sender: FDA-Public Use
  Company Number: FR-MERCK-0810FRA00103

PATIENT
  Age: 70 Year
  Sex: Male
  Weight: 140 kg

DRUGS (4)
  1. JANUVIA [Suspect]
     Indication: DIABETES MELLITUS
     Route: 048
     Dates: start: 20081001, end: 20081023
  2. [THERAPY UNSPECIFIED] [Concomitant]
     Indication: CARDIAC FAILURE
     Route: 048
  3. [THERAPY UNSPECIFIED] [Concomitant]
     Route: 048
  4. [THERAPY UNSPECIFIED] [Concomitant]
     Route: 048

REACTIONS (1)
  - CREATININE RENAL CLEARANCE DECREASED [None]
